FAERS Safety Report 10620306 (Version 2)
Quarter: 2014Q4

REPORT INFORMATION
  Report Type: Spontaneous
  Country: LT (occurrence: LT)
  Receive Date: 20141202
  Receipt Date: 20141219
  Transmission Date: 20150529
  Serious: Yes (Other)
  Sender: FDA-Public Use
  Company Number: LT-PFIZER INC-2014329359

PATIENT
  Age: 60 Year
  Sex: Female
  Weight: 66 kg

DRUGS (5)
  1. TENAXUM [Concomitant]
     Active Substance: RILMENIDINE
     Dosage: 1 MG, DAILY FOR 5-6 YEARS
  2. PERINDOPRIL/INDAPAMIDE KRKA [Concomitant]
     Indication: HYPERTENSIVE HEART DISEASE
     Dosage: 8 MG/2.5 MG, 1X/DAY FOR 5-6 YEARS
  3. BETALOC ZOK ^ASTRA^ [Concomitant]
     Active Substance: METOPROLOL SUCCINATE
     Indication: HYPERTENSIVE HEART DISEASE
     Dosage: 100 MG, 1X/DAY FOR 5-6 YEARS
  4. FOSAVANCE [Concomitant]
     Active Substance: ALENDRONATE SODIUM\CHOLECALCIFEROL
     Indication: OSTEOPOROSIS
     Dosage: 70 MG/5600 IU, WEEKLY, FOR 1.5 YEARS
  5. SORTIS [Suspect]
     Active Substance: ATORVASTATIN
     Indication: TYPE V HYPERLIPIDAEMIA
     Dosage: 40 MG, 1X/DAY
     Route: 048
     Dates: start: 201408, end: 20141016

REACTIONS (3)
  - Myalgia [Recovered/Resolved]
  - Muscular weakness [Recovered/Resolved]
  - Gait disturbance [Recovered/Resolved]

NARRATIVE: CASE EVENT DATE: 20141016
